FAERS Safety Report 6941374-7 (Version None)
Quarter: 2010Q3

REPORT INFORMATION
  Report Type: 
  Country: None (occurrence: None)
  Receive Date: 20100825
  Receipt Date: 20100816
  Transmission Date: 20110219
  Serious: Yes (Other)
  Sender: FDA-Public Use
  Company Number: GB-JNJFOC-20100806341

PATIENT
  Sex: Female

DRUGS (2)
  1. REMICADE [Suspect]
     Indication: CROHN'S DISEASE
     Dosage: FOR A LONG TIME; STOPPED A COUPLE OF YEARS AGO
     Route: 042
  2. HUMIRA [Concomitant]
     Indication: CROHN'S DISEASE
     Dosage: RECENTLY INITIATED

REACTIONS (1)
  - CERVICAL DYSPLASIA [None]
